FAERS Safety Report 16325187 (Version 6)
Quarter: 2021Q2

REPORT INFORMATION
  Report Type: Other
  Country: JP (occurrence: JP)
  Receive Date: 20190517
  Receipt Date: 20210416
  Transmission Date: 20210716
  Serious: Yes (Other)
  Sender: FDA-Public Use
  Company Number: JP-ROCHE-2319600

PATIENT
  Age: 45 Year
  Sex: Male
  Weight: 71.2 kg

DRUGS (24)
  1. WARFARIN POTASSIUM [Suspect]
     Active Substance: WARFARIN POTASSIUM
     Route: 065
     Dates: start: 20190216
  2. QUETIAPINE. [Concomitant]
     Active Substance: QUETIAPINE
     Dates: start: 201809
  3. SELARA [Concomitant]
     Active Substance: EPLERENONE
     Dates: start: 201809
  4. WARFARIN POTASSIUM [Suspect]
     Active Substance: WARFARIN POTASSIUM
     Route: 065
     Dates: start: 20190201
  5. ARTIST [Concomitant]
     Active Substance: CARVEDILOL
     Dates: start: 201809
  6. LYRICA [Concomitant]
     Active Substance: PREGABALIN
     Dates: start: 201810
  7. XOFLUZA [Suspect]
     Active Substance: BALOXAVIR MARBOXIL
     Indication: INFLUENZA
     Route: 048
     Dates: start: 20190201, end: 20190201
  8. WARFARIN POTASSIUM [Suspect]
     Active Substance: WARFARIN POTASSIUM
     Route: 065
     Dates: start: 20190203
  9. WARFARIN POTASSIUM [Suspect]
     Active Substance: WARFARIN POTASSIUM
     Route: 065
     Dates: start: 20190215
  10. CLOPIDOGREL SULFATE [Concomitant]
     Active Substance: CLOPIDOGREL BISULFATE
     Dates: start: 201809
  11. TAKECAB [Concomitant]
     Active Substance: VONOPRAZAN FUMARATE
     Dates: start: 201809
  12. MIYA?BM [Concomitant]
     Active Substance: CLOSTRIDIUM BUTYRICUM SPORES STRAIN M-55
     Dates: start: 201809
  13. OLOPATADINE HYDROCHLORIDE. [Concomitant]
     Active Substance: OLOPATADINE HYDROCHLORIDE
     Dates: start: 201812
  14. WARFARIN POTASSIUM [Suspect]
     Active Substance: WARFARIN POTASSIUM
     Route: 065
     Dates: start: 20190214
  15. LASIX [Concomitant]
     Active Substance: FUROSEMIDE
     Dates: start: 201809
  16. WARFARIN POTASSIUM [Suspect]
     Active Substance: WARFARIN POTASSIUM
     Indication: THROMBOSIS PROPHYLAXIS
     Route: 065
     Dates: start: 201809
  17. WARFARIN POTASSIUM [Suspect]
     Active Substance: WARFARIN POTASSIUM
     Route: 065
     Dates: start: 20190205
  18. AMIODARONE HYDROCHLORIDE. [Concomitant]
     Active Substance: AMIODARONE HYDROCHLORIDE
     Dates: start: 201809
  19. ENALAPRIL MALEATE. [Concomitant]
     Active Substance: ENALAPRIL MALEATE
     Dates: start: 201809
  20. SAMSCA [Concomitant]
     Active Substance: TOLVAPTAN
     Dates: start: 201809
  21. BELSOMRA [Concomitant]
     Active Substance: SUVOREXANT
     Dates: start: 201809
  22. WARFARIN POTASSIUM [Suspect]
     Active Substance: WARFARIN POTASSIUM
     Route: 065
     Dates: start: 20190208
  23. WARFARIN POTASSIUM [Suspect]
     Active Substance: WARFARIN POTASSIUM
     Route: 065
     Dates: start: 20190213
  24. MAGMITT [Concomitant]
     Active Substance: MAGNESIUM OXIDE
     Dates: start: 201809

REACTIONS (2)
  - Drug interaction [Unknown]
  - International normalised ratio increased [Recovered/Resolved]

NARRATIVE: CASE EVENT DATE: 20190205
